FAERS Safety Report 11169725 (Version 1)
Quarter: 2015Q2

REPORT INFORMATION
  Report Type: Spontaneous
  Country: JP (occurrence: JP)
  Receive Date: 20150606
  Receipt Date: 20150606
  Transmission Date: 20150821
  Serious: Yes (Other)
  Sender: FDA-Public Use
  Company Number: JP-ACCORD-031254

PATIENT
  Age: 65 Year
  Sex: Female

DRUGS (2)
  1. SUNITINIB [Suspect]
     Active Substance: SUNITINIB
     Indication: METASTATIC RENAL CELL CARCINOMA
     Dosage: RECEIVED ON DAYS 2-15, DAYS 1 AND 16-21 OFF.
  2. GEMCITABINE/GEMCITABINE HYDROCHLORIDE [Suspect]
     Active Substance: GEMCITABINE\GEMCITABINE HYDROCHLORIDE
     Indication: METASTATIC RENAL CELL CARCINOMA
     Dosage: TREATMENT CONSISTING OF 21-DAY CYCLES, RECEIVED ON DAY 1 AND 8.

REACTIONS (12)
  - Blood alkaline phosphatase increased [Recovered/Resolved]
  - Inappropriate antidiuretic hormone secretion [Recovered/Resolved]
  - Pyrexia [Recovered/Resolved]
  - Pulmonary congestion [Recovered/Resolved]
  - Respiratory distress [Recovered/Resolved]
  - Neutropenia [Recovered/Resolved]
  - Thrombocytopenia [Recovered/Resolved]
  - Hypoxia [Recovered/Resolved]
  - Hypothyroidism [Recovered/Resolved]
  - Depressed level of consciousness [Recovered/Resolved]
  - Lipase increased [Recovered/Resolved]
  - Gamma-glutamyltransferase increased [Recovered/Resolved]
